FAERS Safety Report 24289193 (Version 1)
Quarter: 2024Q3

REPORT INFORMATION
  Report Type: Spontaneous
  Country: DE (occurrence: DE)
  Receive Date: 20240906
  Receipt Date: 20240906
  Transmission Date: 20241016
  Serious: Yes (Other)
  Sender: UCB
  Company Number: DE-UCBSA-2024045157

PATIENT
  Age: 43 Year
  Sex: Female
  Weight: 65 kg

DRUGS (9)
  1. LEVETIRACETAM [Suspect]
     Active Substance: LEVETIRACETAM
     Indication: Epilepsy
     Dosage: UNK
  2. LEVETIRACETAM [Suspect]
     Active Substance: LEVETIRACETAM
     Dosage: 1000 MILLIGRAM, 2X/DAY (BID)
     Route: 048
     Dates: end: 20230914
  3. CITALOPRAM [Suspect]
     Active Substance: CITALOPRAM\CITALOPRAM HYDROBROMIDE
     Indication: Depression
     Dosage: UNK, SINCE 12 YEARS
     Dates: start: 2012
  4. CITALOPRAM [Suspect]
     Active Substance: CITALOPRAM\CITALOPRAM HYDROBROMIDE
     Dosage: 20 MILLIGRAM PER DAY
     Route: 048
     Dates: end: 20230914
  5. MIFEPRISTONE [Concomitant]
     Active Substance: MIFEPRISTONE
     Indication: Abortion induced
     Dosage: 600 MILLIGRAM PER DAY
     Route: 048
     Dates: start: 20230912, end: 20230912
  6. MISOPROSTOL [Concomitant]
     Active Substance: MISOPROSTOL
     Indication: Abortion induced
     Dosage: UNK
     Route: 048
     Dates: start: 20230914, end: 20230914
  7. HEPARIN [Concomitant]
     Active Substance: HEPARIN SODIUM
     Indication: Coagulopathy
     Dosage: UNK
     Route: 058
  8. FOLIO FORTE [CYANOCOBALAMIN;FOLIC ACID;POTASSIUM IODIDE] [Concomitant]
     Indication: Nutritional supplementation
     Dosage: UNK
  9. FOLIO FORTE [CYANOCOBALAMIN;FOLIC ACID;POTASSIUM IODIDE] [Concomitant]
     Dosage: 0.8 MILLIGRAM PER DAY 0. -14.6. GESTATIONAL WEEK, STARTED 5 YEARS BEFORE ONSET UNTIL TERMINATION OF
     Dates: end: 2023

REACTIONS (3)
  - Abortion induced [Unknown]
  - Maternal exposure before pregnancy [Unknown]
  - Maternal exposure during pregnancy [Unknown]

NARRATIVE: CASE EVENT DATE: 20230501
